FAERS Safety Report 24593068 (Version 1)
Quarter: 2024Q4

REPORT INFORMATION
  Report Type: Spontaneous
  Country: CN (occurrence: CN)
  Receive Date: 20241108
  Receipt Date: 20241108
  Transmission Date: 20250114
  Serious: Yes (Life-Threatening, Hospitalization)
  Sender: B BRAUN
  Company Number: CN-B.Braun Medical Inc.-2164710

PATIENT
  Age: 74 Year
  Sex: Female
  Weight: 50.6 kg

DRUGS (1)
  1. NUTRILIPID I.V. FAT EMULSION [Suspect]
     Active Substance: SOYBEAN OIL
     Indication: Malnutrition

REACTIONS (4)
  - Chills [Recovered/Resolved]
  - Ventricular tachycardia [Recovered/Resolved]
  - Atrial fibrillation [Recovered/Resolved]
  - Body temperature increased [Recovered/Resolved]
